FAERS Safety Report 8562617-2 (Version None)
Quarter: 2012Q3

REPORT INFORMATION
  Report Type: 
  Country: None (occurrence: None)
  Receive Date: 20120802
  Receipt Date: 20120710
  Transmission Date: 20120928
  Serious: No
  Sender: FDA-Public Use
  Company Number: US-AMGEN-USASP2012042677

PATIENT
  Age: 57 Year
  Sex: Female

DRUGS (3)
  1. ENBREL [Suspect]
     Indication: RHEUMATOID ARTHRITIS
     Dosage: 50 MG, QWK
     Dates: start: 20120401
  2. METHOTREXATE [Concomitant]
     Dosage: UNK
     Dates: start: 20110101
  3. PLAQUENIL [Concomitant]
     Dosage: 2 MG, UNK
     Dates: start: 20100101

REACTIONS (2)
  - DRUG INEFFECTIVE [None]
  - MENISCUS LESION [None]
